FAERS Safety Report 8123179-7 (Version None)
Quarter: 2012Q1

REPORT INFORMATION
  Report Type: 
  Country: None (occurrence: None)
  Receive Date: 20120208
  Receipt Date: 20120125
  Transmission Date: 20120608
  Serious: Yes (Hospitalization)
  Sender: FDA-Public Use
  Company Number: NL-MEDIMMUNE-MEDI-0014752

PATIENT
  Sex: Female
  Weight: 8.6 kg

DRUGS (4)
  1. SPIRONOLACTONE [Concomitant]
  2. CAPTOPRIL [Concomitant]
  3. SYNAGIS [Suspect]
     Indication: HEART DISEASE CONGENITAL
     Route: 030
     Dates: start: 20111003, end: 20120123
  4. FUROSEMIDE [Concomitant]

REACTIONS (1)
  - FEEDING DISORDER [None]
